FAERS Safety Report 6836578-8 (Version None)
Quarter: 2010Q3

REPORT INFORMATION
  Report Type: 
  Country: None (occurrence: None)
  Receive Date: 20100713
  Receipt Date: 20100709
  Transmission Date: 20110219
  Serious: Yes (Hospitalization)
  Sender: FDA-Public Use
  Company Number: JP-SANOFI-AVENTIS-2010SA040066

PATIENT
  Sex: Male

DRUGS (5)
  1. PLAVIX [Suspect]
     Indication: PERCUTANEOUS CORONARY INTERVENTION
     Route: 048
  2. ASPIRIN [Suspect]
     Indication: PRODUCT USED FOR UNKNOWN INDICATION
  3. MEVALOTIN [Concomitant]
  4. NU-LOTAN [Concomitant]
  5. CALBLOCK [Concomitant]

REACTIONS (3)
  - ARTHRALGIA [None]
  - PHOTOSENSITIVITY REACTION [None]
  - PYREXIA [None]
